FAERS Safety Report 9868075 (Version 1)
Quarter: 2014Q1

REPORT INFORMATION
  Report Type: Spontaneous
  Country: DE (occurrence: DE)
  Receive Date: 20140204
  Receipt Date: 20140204
  Transmission Date: 20141002
  Serious: Yes (Hospitalization)
  Sender: FDA-Public Use
  Company Number: DE-TEVA-458439GER

PATIENT
  Sex: Male

DRUGS (1)
  1. BUPROFEN-RATIOPHARM 400 MG FILMTABLETTEN [Suspect]
     Indication: OSTEOARTHRITIS
     Route: 048

REACTIONS (2)
  - Myalgia [Not Recovered/Not Resolved]
  - Fasciitis [Not Recovered/Not Resolved]
